FAERS Safety Report 6030846-8 (Version None)
Quarter: 2009Q1

REPORT INFORMATION
  Report Type: 
  Country: None (occurrence: None)
  Receive Date: 20090106
  Receipt Date: 20081222
  Transmission Date: 20090719
  Serious: Yes (Other)
  Sender: FDA-Public Use
  Company Number: 2008003334

PATIENT
  Age: 66 Year
  Sex: Male

DRUGS (1)
  1. TARCEVA [Suspect]
     Indication: NON-SMALL CELL LUNG CANCER
     Dosage: 150 MG, QD, ORAL
     Route: 048
     Dates: start: 20081107

REACTIONS (6)
  - ABASIA [None]
  - CONSTIPATION [None]
  - METASTASES TO BONE [None]
  - PAIN IN EXTREMITY [None]
  - RASH [None]
  - TENDON DISORDER [None]
